FAERS Safety Report 9059970 (Version 1)
Quarter: 2013Q1

REPORT INFORMATION
  Report Type: Spontaneous
  Country: US (occurrence: None)
  Receive Date: 20130207
  Receipt Date: 20130207
  Transmission Date: 20140127
  Serious: Yes (Hospitalization)
  Sender: FDA-Public Use
  Company Number: None

PATIENT
  Sex: Male
  Weight: 72.72 kg

DRUGS (6)
  1. CYCLOPHOSPHAMIDE [Suspect]
     Dosage: 1737MG
  2. DOXORUBICIN HYDROCHLORIDE [Suspect]
     Dosage: 92MG
  3. ETOPOSIDE (VP-16) [Suspect]
     Dosage: 464MG
  4. METHOTREXATE [Suspect]
     Dosage: 24MG
  5. RITUXIMAB [Suspect]
     Dosage: 724MG
  6. VINCRISTINE SULFATE [Suspect]
     Dosage: 32MG

REACTIONS (1)
  - Febrile neutropenia [None]
